FAERS Safety Report 5918052-6 (Version None)
Quarter: 2008Q4

REPORT INFORMATION
  Report Type: 
  Country: None (occurrence: None)
  Receive Date: 20081014
  Receipt Date: 20081002
  Transmission Date: 20090506
  Serious: Yes (Hospitalization)
  Sender: FDA-Public Use
  Company Number: BR-PFIZER INC-2008083640

PATIENT
  Sex: Male
  Weight: 68 kg

DRUGS (1)
  1. MARAVIROC [Suspect]
     Indication: HIV TEST POSITIVE
     Route: 048
     Dates: start: 20080815

REACTIONS (1)
  - CONVULSION [None]
